FAERS Safety Report 6306672-9 (Version None)
Quarter: 2009Q3

REPORT INFORMATION
  Report Type: 
  Country: None (occurrence: None)
  Receive Date: 20090811
  Receipt Date: 20090811
  Transmission Date: 20100115
  Serious: No
  Sender: FDA-Public Use
  Company Number: None

PATIENT
  Age: 66 Year
  Sex: Male
  Weight: 70.3075 kg

DRUGS (1)
  1. ZICAM NASAL GEL [Suspect]
     Indication: UPPER RESPIRATORY TRACT INFECTION
     Dosage: QID NASAL
     Route: 045
     Dates: start: 20071101, end: 20071106

REACTIONS (2)
  - AGEUSIA [None]
  - ANOSMIA [None]
